FAERS Safety Report 11369168 (Version 2)
Quarter: 2015Q3

REPORT INFORMATION
  Report Type: Spontaneous
  Country: JP (occurrence: JP)
  Receive Date: 20150812
  Receipt Date: 20150825
  Transmission Date: 20151125
  Serious: Yes (Life-Threatening, Hospitalization, Other)
  Sender: FDA-Public Use
  Company Number: JP-ROCHE-1618015

PATIENT
  Age: 73 Year
  Sex: Female
  Weight: 65 kg

DRUGS (15)
  1. AVASTIN [Suspect]
     Active Substance: BEVACIZUMAB
     Indication: COLON CANCER
     Dosage: SIX COURSES
     Route: 041
     Dates: start: 20140819, end: 20140909
  2. XELODA [Suspect]
     Active Substance: CAPECITABINE
     Indication: COLON CANCER
     Dosage: 13 COURSES
     Route: 048
     Dates: start: 20150421, end: 20150427
  3. AVASTIN [Suspect]
     Active Substance: BEVACIZUMAB
     Indication: COLON CANCER
     Dosage: FOUR COURSES
     Route: 041
     Dates: start: 20140404, end: 20140613
  4. XELODA [Suspect]
     Active Substance: CAPECITABINE
     Indication: COLON CANCER
     Dosage: NINE COURSES
     Route: 048
     Dates: start: 20141211, end: 20141211
  5. ELPLAT [Suspect]
     Active Substance: OXALIPLATIN
     Indication: COLON CANCER
     Dosage: DOSAGE IS UNCERTAIN. ?NINE COURSES
     Route: 041
     Dates: start: 20140819, end: 20141211
  6. ELPLAT [Suspect]
     Active Substance: OXALIPLATIN
     Indication: COLON CANCER
     Dosage: DOSAGE IS UNCERTAIN. ?13 COURSES
     Route: 041
     Dates: start: 20150421, end: 20150421
  7. XELODA [Suspect]
     Active Substance: CAPECITABINE
     Indication: COLON CANCER
     Dosage: 12 COURSES
     Route: 048
     Dates: start: 20150120, end: 20150310
  8. ELPLAT [Suspect]
     Active Substance: OXALIPLATIN
     Indication: COLON CANCER
     Dosage: DOSAGE IS UNCERTAIN. ?12 COURSES
     Route: 041
     Dates: start: 20150120, end: 20150310
  9. DECADRON [Concomitant]
     Active Substance: DEXAMETHASONE
     Route: 048
     Dates: start: 20140405, end: 20150427
  10. DECADRON [Concomitant]
     Active Substance: DEXAMETHASONE
     Route: 041
     Dates: start: 20140404, end: 20150427
  11. GRANISETRON [Concomitant]
     Active Substance: GRANISETRON
     Route: 041
     Dates: start: 20140404, end: 20150427
  12. XELODA [Suspect]
     Active Substance: CAPECITABINE
     Indication: COLON CANCER
     Dosage: EIGHT COURSES
     Route: 048
     Dates: start: 20140819, end: 20141111
  13. ELPLAT [Suspect]
     Active Substance: OXALIPLATIN
     Indication: COLON CANCER
     Dosage: DOSAGE IS UNCERTAIN. ?FOUR COURSES
     Route: 041
     Dates: start: 20140404, end: 20140613
  14. XELODA [Suspect]
     Active Substance: CAPECITABINE
     Indication: COLON CANCER
     Dosage: FOUR COURSES
     Route: 048
     Dates: start: 20140404, end: 20140613
  15. HIRUDOID OINTMENT [Concomitant]
     Dosage: DOSAGE IS UNCERTAIN.
     Route: 003
     Dates: start: 20140404, end: 20150427

REACTIONS (7)
  - Decreased appetite [Recovered/Resolved]
  - Colitis ischaemic [Recovered/Resolved]
  - Palmar-plantar erythrodysaesthesia syndrome [Recovered/Resolved]
  - Gastric ulcer [Recovered/Resolved]
  - Stoma site haemorrhage [Recovered/Resolved]
  - Enterocolitis [Recovered/Resolved]
  - Eye haemorrhage [Recovered/Resolved]

NARRATIVE: CASE EVENT DATE: 20140620
